FAERS Safety Report 8476491-6 (Version None)
Quarter: 2012Q2

REPORT INFORMATION
  Report Type: 
  Country: None (occurrence: None)
  Receive Date: 20120628
  Receipt Date: 20120615
  Transmission Date: 20120825
  Serious: Yes (Other)
  Sender: FDA-Public Use
  Company Number: IN-MYLANLABS-2012S1012273

PATIENT
  Age: 43 Year
  Sex: Female

DRUGS (3)
  1. CLOBAZAM [Suspect]
     Indication: EPILEPSY
     Route: 065
  2. ZONISAMIDE [Suspect]
     Indication: EPILEPSY
     Route: 065
  3. OXCARBAZEPINE [Suspect]
     Indication: EPILEPSY
     Route: 065

REACTIONS (4)
  - HYPERPARATHYROIDISM SECONDARY [None]
  - VITAMIN D DEFICIENCY [None]
  - BROWN TUMOUR [None]
  - FEMORAL NECK FRACTURE [None]
